FAERS Safety Report 24904872 (Version 1)
Quarter: 2025Q1

REPORT INFORMATION
  Report Type: Spontaneous
  Country: CO (occurrence: CO)
  Receive Date: 20250130
  Receipt Date: 20250130
  Transmission Date: 20250409
  Serious: Yes (Death, Other)
  Sender: SANDOZ
  Company Number: CO-002147023-NVSC2025CO015706

PATIENT
  Age: 95 Year
  Sex: Male
  Weight: 66 kg

DRUGS (1)
  1. EXELON [Suspect]
     Active Substance: RIVASTIGMINE TARTRATE
     Indication: Dementia Alzheimer^s type
     Dosage: 1 DF, QD (EXELON PARCHE 15)
     Route: 062
     Dates: start: 20190613, end: 20250123

REACTIONS (1)
  - Death [Fatal]

NARRATIVE: CASE EVENT DATE: 20250124
